FAERS Safety Report 18926785 (Version 1)
Quarter: 2021Q1

REPORT INFORMATION
  Report Type: Spontaneous
  Country: GB (occurrence: GB)
  Receive Date: 20210223
  Receipt Date: 20210223
  Transmission Date: 20210420
  Serious: Yes (Other)
  Sender: FDA-Public Use
  Company Number: NVSC2021GB036417

PATIENT
  Age: 13 Year
  Sex: Male
  Weight: 18 kg

DRUGS (3)
  1. PHENOXYMETHYLPENICILLIN (= PENICILLIN V) [Suspect]
     Active Substance: PENICILLIN V
     Indication: ILL-DEFINED DISORDER
     Dosage: UNK
     Route: 065
     Dates: start: 20210210
  2. BENZYDAMINE HCL [Concomitant]
     Indication: ILL-DEFINED DISORDER
     Dosage: UNK (4?8 SPRAYS TO BE USED EVERY 3 HRS, OR AS DIRECTED)
     Route: 065
     Dates: start: 20210210
  3. ERYTHROMYCIN ETHYLSUCCINATE. [Concomitant]
     Active Substance: ERYTHROMYCIN ETHYLSUCCINATE
     Indication: ILL-DEFINED DISORDER
     Dosage: UNK (1X5ML SPOON 4 TIMES/DAY FOR 5 DAYS ? URGENT SAM)
     Route: 065
     Dates: start: 20210210

REACTIONS (1)
  - Lethargy [Recovering/Resolving]

NARRATIVE: CASE EVENT DATE: 20210210
